FAERS Safety Report 10652607 (Version 1)
Quarter: 2014Q4

REPORT INFORMATION
  Report Type: Spontaneous
  Country: GB (occurrence: GB)
  Receive Date: 20141215
  Receipt Date: 20141215
  Transmission Date: 20150529
  Serious: Yes (Life-Threatening)
  Sender: FDA-Public Use
  Company Number: GB-WATSON-2014-26360

PATIENT
  Age: 21 Year
  Sex: Male
  Weight: 68 kg

DRUGS (4)
  1. EFAVIRENZ (UNKNOWN) [Suspect]
     Active Substance: EFAVIRENZ
     Indication: HIV ANTIBODY POSITIVE
     Dosage: 20 X 600 MG, UNKNOWN
     Route: 048
     Dates: start: 20140801
  2. TRUVADA [Suspect]
     Active Substance: EMTRICITABINE\TENOFOVIR DISOPROXIL FUMARATE
     Indication: HIV INFECTION
     Dosage: 20 X 1 DF, UNKNOWN
     Route: 048
     Dates: start: 20140801
  3. ALCOHOL. [Concomitant]
     Active Substance: ALCOHOL
     Indication: PRODUCT USED FOR UNKNOWN INDICATION
     Dosage: UNK
     Route: 065
  4. CITALOPRAM [Suspect]
     Active Substance: CITALOPRAM HYDROBROMIDE
     Indication: DEPRESSION
     Dosage: 20 MG, UNKNOWN
     Route: 065

REACTIONS (2)
  - Hypoglycaemia [Recovered/Resolved]
  - Overdose [Unknown]

NARRATIVE: CASE EVENT DATE: 20141123
